FAERS Safety Report 14782267 (Version 1)
Quarter: 2018Q2

REPORT INFORMATION
  Report Type: Spontaneous
  Country: FR (occurrence: FR)
  Receive Date: 20180420
  Receipt Date: 20180420
  Transmission Date: 20180711
  Serious: Yes (Other)
  Sender: FDA-Public Use
  Company Number: FR-MERCK KGAA-2046113

PATIENT
  Age: 75 Year
  Sex: Male

DRUGS (1)
  1. NOVOTHYROX [Suspect]
     Active Substance: LEVOTHYROXINE SODIUM
     Indication: POST PROCEDURAL HYPOTHYROIDISM

REACTIONS (25)
  - Depression [None]
  - Gamma-glutamyltransferase increased [None]
  - Muscle spasms [None]
  - Musculoskeletal pain [None]
  - Social avoidant behaviour [None]
  - C-reactive protein increased [None]
  - Suicidal ideation [None]
  - Dyspnoea [None]
  - Gait disturbance [None]
  - Glycosylated haemoglobin increased [None]
  - Dry throat [None]
  - Headache [None]
  - Loss of personal independence in daily activities [None]
  - Blood thyroid stimulating hormone increased [None]
  - Myalgia [None]
  - Vertigo [None]
  - Impaired driving ability [None]
  - Tri-iodothyronine free decreased [None]
  - Visual impairment [None]
  - Oropharyngeal pain [None]
  - Thyroxine free increased [None]
  - Palpitations [None]
  - Fatigue [None]
  - Nausea [None]
  - Depressed mood [None]

NARRATIVE: CASE EVENT DATE: 20170227
